FAERS Safety Report 6271997-2 (Version None)
Quarter: 2009Q3

REPORT INFORMATION
  Report Type: 
  Country: None (occurrence: None)
  Receive Date: 20090717
  Receipt Date: 20090710
  Transmission Date: 20100115
  Serious: No
  Sender: FDA-Public Use
  Company Number: US-B.I. PHARMACEUTICALS,INC./RIDGEFIELD-2009-BP-08266BP

PATIENT
  Age: 71 Year
  Sex: Male

DRUGS (2)
  1. ZANTAC 75 [Suspect]
     Route: 048
     Dates: start: 20090701
  2. GLAUCOMA EYE DROPS [Concomitant]
     Route: 031

REACTIONS (2)
  - DIARRHOEA [None]
  - POLYP [None]
